FAERS Safety Report 24081513 (Version 1)
Quarter: 2024Q3

REPORT INFORMATION
  Report Type: Spontaneous
  Country: US (occurrence: US)
  Receive Date: 20240712
  Receipt Date: 20240712
  Transmission Date: 20241016
  Serious: Yes (Hospitalization, Other)
  Sender: NOVO NORDISK
  Company Number: US-NOVOPROD-1215834

PATIENT
  Age: 76 Year

DRUGS (1)
  1. OZEMPIC [Suspect]
     Active Substance: SEMAGLUTIDE
     Indication: Weight control
     Dosage: 0.5 MG
     Route: 058
     Dates: start: 2023, end: 20231214

REACTIONS (6)
  - Fall [Recovered/Resolved]
  - Wrist fracture [Recovered/Resolved]
  - Lumbar vertebral fracture [Recovered/Resolved]
  - Fractured sacrum [Recovered/Resolved]
  - Vomiting projectile [Recovered/Resolved]
  - Off label use [Unknown]

NARRATIVE: CASE EVENT DATE: 20231212
